FAERS Safety Report 20511242 (Version 2)
Quarter: 2022Q1

REPORT INFORMATION
  Report Type: Report from Study
  Country: HU (occurrence: HU)
  Receive Date: 20220224
  Receipt Date: 20220314
  Transmission Date: 20220423
  Serious: Yes (Death, Hospitalization, Other)
  Sender: FDA-Public Use
  Company Number: HU-NOVARTISPH-NVSC2022HU042023

PATIENT
  Age: 77 Year

DRUGS (12)
  1. KISQALI [Suspect]
     Active Substance: RIBOCICLIB
     Indication: Product used for unknown indication
     Dosage: UNK
     Route: 065
  2. MINIPRESS [Suspect]
     Active Substance: PRAZOSIN HYDROCHLORIDE
     Indication: Product used for unknown indication
     Dosage: UNK
     Route: 065
  3. SULFAMETHOXAZOLE\TRIMETHOPRIM [Suspect]
     Active Substance: SULFAMETHOXAZOLE\TRIMETHOPRIM
     Indication: Product used for unknown indication
     Dosage: UNK
     Route: 065
  4. CALCIUM DOBESILATE [Suspect]
     Active Substance: CALCIUM DOBESILATE
     Indication: Product used for unknown indication
     Dosage: UNK, QD (1)
     Route: 065
  5. TRAMADOL [Suspect]
     Active Substance: TRAMADOL
     Indication: Product used for unknown indication
     Dosage: UNK
     Route: 065
  6. MELOXEP [Concomitant]
     Indication: Product used for unknown indication
     Dosage: UNK
     Route: 065
  7. BISOBLOCK PLUS [Concomitant]
     Indication: Product used for unknown indication
     Dosage: UNK, QD (1)
     Route: 065
  8. FUROSEMIDE [Concomitant]
     Active Substance: FUROSEMIDE
     Indication: Product used for unknown indication
     Route: 065
  9. DALNESSA [Concomitant]
     Indication: Product used for unknown indication
     Dosage: UNK, QD (1)
     Route: 065
  10. RILMENIDINE [Concomitant]
     Active Substance: RILMENIDINE
     Indication: Product used for unknown indication
     Dosage: UNK (1)
     Route: 065
  11. RIVOTRIL [Concomitant]
     Active Substance: CLONAZEPAM
     Indication: Product used for unknown indication
     Dosage: 0.5 MG, TID
     Route: 065
  12. MIRTAZAPINE [Concomitant]
     Active Substance: MIRTAZAPINE
     Indication: Product used for unknown indication
     Dosage: 30 MG (IN THE EVENING)
     Route: 065

REACTIONS (33)
  - COVID-19 [Fatal]
  - Dyspnoea [Fatal]
  - Back pain [Fatal]
  - Oxygen consumption [Recovering/Resolving]
  - Asthenia [Not Recovered/Not Resolved]
  - Renal failure [Unknown]
  - Myocardial ischaemia [Unknown]
  - Metastases to lymph nodes [Unknown]
  - Metastases to lung [Unknown]
  - Metastases to bone [Unknown]
  - Respiratory failure [Unknown]
  - Hydrothorax [Unknown]
  - Drug hypersensitivity [Unknown]
  - Tachycardia [Unknown]
  - Obesity [Unknown]
  - Generalised oedema [Unknown]
  - Pyrexia [Unknown]
  - Respiratory disorder [Recovering/Resolving]
  - Crepitations [Unknown]
  - Tachypnoea [Recovering/Resolving]
  - Atelectasis [Unknown]
  - Respiratory rate increased [Unknown]
  - Tongue coated [Unknown]
  - Tongue dry [Unknown]
  - Gastrointestinal sounds abnormal [Unknown]
  - Hepatomegaly [Unknown]
  - Blood glucose abnormal [Unknown]
  - Breast neoplasm [Unknown]
  - Arthropathy [Unknown]
  - Rales [Unknown]
  - Pallor [Unknown]
  - Inflammation [Unknown]
  - Urinary incontinence [Unknown]

NARRATIVE: CASE EVENT DATE: 20220201
